FAERS Safety Report 9392300 (Version 2)
Quarter: 2013Q3

REPORT INFORMATION
  Report Type: Spontaneous
  Country: US (occurrence: US)
  Receive Date: 20130710
  Receipt Date: 20130806
  Transmission Date: 20140515
  Serious: Yes (Other)
  Sender: FDA-Public Use
  Company Number: US-AMGEN-USASP2013047225

PATIENT
  Age: 62 Year
  Sex: Female

DRUGS (6)
  1. PROLIA [Suspect]
     Indication: OSTEOPOROSIS POSTMENOPAUSAL
     Dosage: UNK UNK, Q6MO
     Route: 065
     Dates: start: 20120930
  2. BABY ASPIRIN [Concomitant]
  3. CALCIUM [Concomitant]
  4. VITAMIN D                          /00107901/ [Concomitant]
  5. VITAMINS                           /00067501/ [Concomitant]
  6. ALLERGY MEDICATION [Concomitant]

REACTIONS (20)
  - Infection [Unknown]
  - Labyrinthitis [Unknown]
  - Back pain [Unknown]
  - Cystitis [Unknown]
  - Deafness transitory [Recovering/Resolving]
  - Dyspnoea [Unknown]
  - Drug hypersensitivity [Unknown]
  - Pyrexia [Unknown]
  - Chest pain [Unknown]
  - Ear pain [Not Recovered/Not Resolved]
  - Oropharyngeal pain [Recovered/Resolved]
  - Dry throat [Not Recovered/Not Resolved]
  - Dry mouth [Unknown]
  - Paraesthesia [Unknown]
  - Hypoaesthesia [Unknown]
  - Temporomandibular joint syndrome [Unknown]
  - Arthralgia [Unknown]
  - Myalgia [Unknown]
  - Dysstasia [Unknown]
  - Pain in extremity [Unknown]
